FAERS Safety Report 22123501 (Version 1)
Quarter: 2023Q1

REPORT INFORMATION
  Report Type: Spontaneous
  Country: NL (occurrence: NL)
  Receive Date: 20230322
  Receipt Date: 20230322
  Transmission Date: 20230418
  Serious: Yes (Life-Threatening, Hospitalization)
  Sender: FDA-Public Use
  Company Number: None

PATIENT
  Sex: Female
  Weight: 95.7 kg

DRUGS (1)
  1. PANTOPRAZOLE SODIUM [Suspect]
     Active Substance: PANTOPRAZOLE SODIUM
     Indication: Duodenal ulcer
     Dosage: 80 MILLIGRAM DAILY; 1 TABLET 2X A DAY,  PANTOPRAZOLE TABLET MSR 40MG / BRAND NAME NOT SPECIFIED
     Route: 065
     Dates: start: 20221212, end: 20230206

REACTIONS (1)
  - Acute kidney injury [Recovering/Resolving]
